FAERS Safety Report 25776485 (Version 1)
Quarter: 2025Q3

REPORT INFORMATION
  Report Type: Spontaneous
  Country: US (occurrence: US)
  Receive Date: 20250909
  Receipt Date: 20250909
  Transmission Date: 20251021
  Serious: No
  Sender: DOMPE FARMACEUTICI
  Company Number: US-FARMAPROD-202503-0708

PATIENT
  Age: 69 Year
  Sex: Female
  Weight: 53.07 kg

DRUGS (17)
  1. OXERVATE [Suspect]
     Active Substance: CENEGERMIN-BKBJ
     Indication: Neurotrophic keratopathy
     Route: 047
     Dates: start: 20220212
  2. OXERVATE [Suspect]
     Active Substance: CENEGERMIN-BKBJ
     Route: 047
     Dates: start: 20250227
  3. LOTEPREDNOL ETABONATE [Concomitant]
     Active Substance: LOTEPREDNOL ETABONATE
  4. TYLENOL [Concomitant]
     Active Substance: ACETAMINOPHEN
  5. ELIQUIS [Concomitant]
     Active Substance: APIXABAN
  6. MELATONIN [Concomitant]
     Active Substance: MELATONIN
  7. ESCITALOPRAM OXALATE [Concomitant]
     Active Substance: ESCITALOPRAM OXALATE
  8. DIAZEPAM [Concomitant]
     Active Substance: DIAZEPAM
  9. PREGABALIN [Concomitant]
     Active Substance: PREGABALIN
  10. RIZATRIPTAN [Concomitant]
     Active Substance: RIZATRIPTAN
  11. HYDROCORTISONE [Concomitant]
     Active Substance: HYDROCORTISONE
  12. PANTOPRAZOLE SODIUM [Concomitant]
     Active Substance: PANTOPRAZOLE SODIUM
  13. VENTOLIN HFA [Concomitant]
     Active Substance: ALBUTEROL SULFATE
  14. DEXTROAMPHETAMINE-AMPHET [Concomitant]
  15. HYDROCORTISONE [Concomitant]
     Active Substance: HYDROCORTISONE
  16. HYDROMORPHONE HCL [Concomitant]
     Active Substance: HYDROMORPHONE HYDROCHLORIDE
  17. TRAZODONE HCL [Concomitant]
     Active Substance: TRAZODONE HYDROCHLORIDE

REACTIONS (3)
  - Eye pain [Unknown]
  - Eyelid pain [Unknown]
  - Intentional product misuse [Unknown]

NARRATIVE: CASE EVENT DATE: 20250227
